FAERS Safety Report 5117329-4 (Version None)
Quarter: 2006Q3

REPORT INFORMATION
  Report Type: 
  Country: None (occurrence: None)
  Receive Date: 20060929
  Receipt Date: 20060911
  Transmission Date: 20061208
  Serious: Yes (Life-Threatening, Hospitalization)
  Sender: FDA-Public Use
  Company Number: 2006AC01649

PATIENT
  Age: 18 Year
  Sex: Female

DRUGS (1)
  1. QUETIAPINE [Suspect]
     Dosage: 26 TABLETS OF UNK STRENGTH
     Route: 048

REACTIONS (3)
  - GRAND MAL CONVULSION [None]
  - OVERDOSE [None]
  - SINUS TACHYCARDIA [None]
